FAERS Safety Report 13796702 (Version 3)
Quarter: 2018Q3

REPORT INFORMATION
  Report Type: Report from Study
  Country: US (occurrence: US)
  Receive Date: 20170726
  Receipt Date: 20180724
  Transmission Date: 20181010
  Serious: No
  Sender: FDA-Public Use
  Company Number: US-AMGEN-USASL2017099900

PATIENT
  Age: 84 Year
  Sex: Male

DRUGS (1)
  1. KYPROLIS [Suspect]
     Active Substance: CARFILZOMIB
     Indication: PLASMA CELL MYELOMA
     Dosage: UNK UNK, QWK (ONCE A WEEK FOR 3 WEEKS ON AND 1 WEEK OFF)
     Route: 065

REACTIONS (2)
  - Off label use [Unknown]
  - Diarrhoea [Not Recovered/Not Resolved]
